FAERS Safety Report 10844244 (Version 1)
Quarter: 2015Q1

REPORT INFORMATION
  Report Type: Spontaneous
  Country: US (occurrence: US)
  Receive Date: 20150220
  Receipt Date: 20150220
  Transmission Date: 20150721
  Serious: Yes (Other)
  Sender: FDA-Public Use
  Company Number: US-MYLANLABS-2015M1005394

PATIENT

DRUGS (7)
  1. LITHIUM [Suspect]
     Active Substance: LITHIUM CARBONATE
     Route: 065
  2. LITHIUM [Suspect]
     Active Substance: LITHIUM CARBONATE
     Dosage: 300 TO 450MG
     Route: 065
     Dates: start: 2011
  3. LITHIUM [Suspect]
     Active Substance: LITHIUM CARBONATE
     Route: 065
     Dates: start: 1997, end: 2001
  4. QUETIAPINE [Suspect]
     Active Substance: QUETIAPINE
     Indication: BIPOLAR I DISORDER
     Dosage: 100 MG
     Route: 065
  5. RISPERIDONE. [Suspect]
     Active Substance: RISPERIDONE
     Indication: BIPOLAR I DISORDER
     Dosage: 1MG
     Route: 065
  6. CARBAMAZEPINE. [Suspect]
     Active Substance: CARBAMAZEPINE
     Indication: BIPOLAR I DISORDER
     Route: 065
  7. CALCIUM [Concomitant]
     Active Substance: CALCIUM
     Indication: MINERAL SUPPLEMENTATION
     Route: 065

REACTIONS (9)
  - Hyperparathyroidism primary [Unknown]
  - Hypothyroidism [Unknown]
  - Rash [Unknown]
  - Nephrogenic diabetes insipidus [Unknown]
  - Perineal rash [Unknown]
  - Sedation [Unknown]
  - Glomerulonephritis chronic [Unknown]
  - Drug ineffective [Unknown]
  - Chronic kidney disease [Unknown]
